FAERS Safety Report 6732479-4 (Version None)
Quarter: 2010Q2

REPORT INFORMATION
  Report Type: 
  Country: None (occurrence: None)
  Receive Date: 20100519
  Receipt Date: 20100511
  Transmission Date: 20101027
  Serious: Yes (Hospitalization, Other)
  Sender: FDA-Public Use
  Company Number: US-BAYER-201012969NA

PATIENT
  Age: 68 Year
  Sex: Male
  Weight: 82 kg

DRUGS (7)
  1. LEVITRA [Suspect]
     Indication: ERECTILE DYSFUNCTION
     Dosage: TOTAL DAILY DOSE: 20 MG  UNIT DOSE: 20 MG
     Route: 048
     Dates: start: 20050101
  2. UNKNOWN DRUG [Concomitant]
     Indication: BLOOD PRESSURE ABNORMAL
     Route: 065
  3. UNKNOWN DRUG [Concomitant]
     Indication: BLOOD CHOLESTEROL ABNORMAL
     Route: 065
  4. LISINOPRIL [Concomitant]
     Dosage: TOTAL DAILY DOSE: 40 MG  UNIT DOSE: 20 MG
     Route: 048
  5. HYDROCHLOROTHIAZIDE [Concomitant]
  6. SYNVASTATIN [Concomitant]
     Dosage: TOTAL DAILY DOSE: 20 MG  UNIT DOSE: 40 MG
     Route: 048
  7. DIAZEPAN [Concomitant]
     Dosage: AS USED: 240 MG  UNIT DOSE: 240 MG
     Route: 048

REACTIONS (3)
  - AMNESIA [None]
  - APHASIA [None]
  - TRANSIENT GLOBAL AMNESIA [None]
